FAERS Safety Report 6564563-2 (Version None)
Quarter: 2010Q1

REPORT INFORMATION
  Report Type: 
  Country: None (occurrence: None)
  Receive Date: 20100201
  Receipt Date: 20100119
  Transmission Date: 20100710
  Serious: Yes (Hospitalization)
  Sender: FDA-Public Use
  Company Number: PHHY2009US02213

PATIENT
  Sex: Female
  Weight: 55.2 kg

DRUGS (5)
  1. ERL 080A ERL+TAB [Suspect]
     Dosage: 1440 MG/DAY
     Route: 048
     Dates: start: 20070722
  2. ERL 080A ERL+TAB [Suspect]
     Dosage: 1440 MG/DAY
     Route: 048
  3. VALCYTE [Concomitant]
     Dosage: UNK
  4. TACROLIMUS [Concomitant]
     Indication: IMMUNOSUPPRESSION
     Dosage: 2 MG TWICE DAILY
  5. PREDNISONE [Concomitant]
     Indication: IMMUNOSUPPRESSION
     Dosage: 10 MG ONCE DAILY

REACTIONS (3)
  - BLOOD CREATININE INCREASED [None]
  - DISEASE RECURRENCE [None]
  - PNEUMONIA [None]
